FAERS Safety Report 8166860-6 (Version None)
Quarter: 2012Q1

REPORT INFORMATION
  Report Type: 
  Country: None (occurrence: None)
  Receive Date: 20120227
  Receipt Date: 20120215
  Transmission Date: 20120608
  Serious: Yes (Hospitalization)
  Sender: FDA-Public Use
  Company Number: JP-UCBSA-051057

PATIENT
  Age: 8 Year
  Sex: Male
  Weight: 28 kg

DRUGS (10)
  1. KEPPRA [Suspect]
     Route: 048
     Dates: start: 20120124, end: 20120130
  2. KEPPRA [Suspect]
     Indication: EPILEPSY
     Route: 048
     Dates: start: 20120108, end: 20120111
  3. KEPPRA [Suspect]
     Route: 048
     Dates: start: 20120131, end: 20120201
  4. TOPIRAMATE [Concomitant]
     Indication: EPILEPSY
     Dosage: DAILY DOSE: 150 MG
     Route: 048
     Dates: start: 20090202
  5. KEPPRA [Suspect]
     Route: 048
     Dates: start: 20120116, end: 20120123
  6. KEPPRA [Suspect]
     Route: 048
     Dates: start: 20120112, end: 20120115
  7. CLONAZEPAM [Concomitant]
     Indication: EPILEPSY
     Dosage: TOATAL DAILY DOSE: 5 MG
     Route: 048
     Dates: start: 20040301
  8. PHENOBARBITAL TAB [Concomitant]
     Indication: EPILEPSY
     Route: 048
     Dates: start: 20111228
  9. KENKETSU VENILON-I [Concomitant]
     Dosage: 2500 MG (500ML X 22 VIALS)
     Dates: start: 20111226, end: 20111227
  10. VALPROATE SODIUM [Concomitant]
     Indication: EPILEPSY
     Dosage: TOTAL DAILY DOSE: 300 MG
     Route: 048
     Dates: start: 20030901, end: 20120130

REACTIONS (5)
  - PYREXIA [None]
  - INFLUENZA A VIRUS TEST POSITIVE [None]
  - WHITE BLOOD CELL COUNT DECREASED [None]
  - PLATELET COUNT DECREASED [None]
  - C-REACTIVE PROTEIN INCREASED [None]
